FAERS Safety Report 21842009 (Version 1)
Quarter: 2023Q1

REPORT INFORMATION
  Report Type: Spontaneous
  Country: US (occurrence: US)
  Receive Date: 20230110
  Receipt Date: 20230110
  Transmission Date: 20230417
  Serious: Yes (Hospitalization, Other)
  Sender: FDA-Public Use
  Company Number: US-Fresenius Medical Care Renal Therapies Group-FMC-2301-000021

PATIENT
  Age: 57 Year
  Sex: Male
  Weight: 72.7 kg

DRUGS (1)
  1. DELFLEX WITH DEXTROSE 2.5% LOW MAGNESIUM LOW CALCIUM [Suspect]
     Active Substance: CALCIUM CHLORIDE\DEXTROSE\MAGNESIUM CHLORIDE\SODIUM CHLORIDE\SODIUM LACTATE
     Indication: End stage renal disease
     Dosage: DELFLEX AT 2000 ML FOR 5 CYCLES WITH NO LAST FILL AND NO DAYTIME EXCHANGE.
     Route: 033
     Dates: start: 20220207

REACTIONS (1)
  - Seizure [Unknown]
